FAERS Safety Report 14068098 (Version 1)
Quarter: 2017Q4

REPORT INFORMATION
  Report Type: Spontaneous
  Country: JP (occurrence: JP)
  Receive Date: 20171010
  Receipt Date: 20171010
  Transmission Date: 20180321
  Serious: Yes (Other)
  Sender: FDA-Public Use
  Company Number: JP-ROCHE-1993511

PATIENT
  Age: 100 Year
  Sex: Female
  Weight: 41 kg

DRUGS (6)
  1. CEPHADOL [Concomitant]
     Active Substance: DIPHENIDOL HYDROCHLORIDE
     Dosage: ONCE DOSAGE: 50 (UNIT UNCERTAINTY)
     Route: 065
     Dates: start: 201603
  2. LASIX [Concomitant]
     Active Substance: FUROSEMIDE
     Dosage: ONCE DOSAGE: 20 (UNIT UNCERTAINTY)
     Route: 048
     Dates: start: 200107
  3. BONVIVA [Suspect]
     Active Substance: IBANDRONATE SODIUM
     Indication: OSTEOPOROSIS
     Route: 042
     Dates: start: 201312, end: 201608
  4. TAKEPRON [Concomitant]
     Active Substance: LANSOPRAZOLE
     Dosage: ONCE DOSAGE: 15 (UNIT UNCERTAINTY)
     Route: 048
     Dates: start: 200107
  5. SERMION [Concomitant]
     Active Substance: NICERGOLINE
     Dosage: ONCE DOSAGE: 10 (UNIT UNCERTAINTY)
     Route: 065
     Dates: start: 201603
  6. CRESTOR [Concomitant]
     Active Substance: ROSUVASTATIN CALCIUM
     Dosage: ONCE DOSAGE: 2.5 (UNIT UNCERTAINTY)
     Route: 065
     Dates: start: 200107

REACTIONS (3)
  - Osteomyelitis [Unknown]
  - Osteonecrosis of jaw [Not Recovered/Not Resolved]
  - Dizziness [Not Recovered/Not Resolved]

NARRATIVE: CASE EVENT DATE: 201603
